FAERS Safety Report 15617148 (Version 6)
Quarter: 2019Q4

REPORT INFORMATION
  Report Type: Spontaneous
  Country: US (occurrence: US)
  Receive Date: 20181114
  Receipt Date: 20191216
  Transmission Date: 20200122
  Serious: No
  Sender: FDA-Public Use
  Company Number: US-PFIZER INC-2017388588

PATIENT
  Age: 68 Year
  Sex: Female
  Weight: 72.11 kg

DRUGS (18)
  1. MOBIC [Concomitant]
     Active Substance: MELOXICAM
     Dosage: 7.5 MG, DAILY
  2. DICLOFENAC SODIUM. [Concomitant]
     Active Substance: DICLOFENAC SODIUM
     Dosage: UNK UNK, AS NEEDED
  3. PROBIOTIC SACCHAROMYCES BOULARDII+ MOS [Concomitant]
     Dosage: UNK UNK, DAILY (ONE DAILY BREAKFAST)
  4. MAGNESIUM CITRATE. [Concomitant]
     Active Substance: MAGNESIUM CITRATE
     Dosage: 400 MG, DAILY (1 DAILY)
  5. TYLENOL [Concomitant]
     Active Substance: ACETAMINOPHEN
     Dosage: UNK UNK, AS NEEDED (500-1000 MG)
  6. LYRICA [Suspect]
     Active Substance: PREGABALIN
     Indication: NEUROPATHY PERIPHERAL
     Dosage: 100 MG, 3X/DAY (TID)
     Route: 048
     Dates: start: 2014
  7. POTASSIUM CITRATE. [Concomitant]
     Active Substance: POTASSIUM CITRATE
     Dosage: 20 MEQ, 3X/DAY (TID WITH MEALS)
  8. MIRALAX [Concomitant]
     Active Substance: POLYETHYLENE GLYCOL 3350
     Dosage: 17 G, AS NEEDED (DAILY HS PEN PRN)
  9. VITAMIN K2 [Concomitant]
     Active Substance: MENAQUINONE 6
     Dosage: 5 MG, DAILY
  10. LYRICA [Suspect]
     Active Substance: PREGABALIN
     Indication: POLYNEUROPATHY
     Dosage: 75 MG, 3X/DAY
     Route: 048
  11. LYRICA [Suspect]
     Active Substance: PREGABALIN
     Indication: NEUROPATHY PERIPHERAL
     Dosage: 100 MG, UNK
  12. EPIPEN [Concomitant]
     Active Substance: EPINEPHRINE
     Dosage: UNK UNK, AS NEEDED (PRN)
  13. KONSYL [Concomitant]
     Active Substance: PSYLLIUM HUSK
     Dosage: UNK UNK, 1X/DAY (1 TSP. DAILY EVENING)
  14. LYRICA [Suspect]
     Active Substance: PREGABALIN
     Dosage: 150 MG, 3X/DAY
     Route: 048
  15. PROBIOTIC JARRO DOPHILUS [Concomitant]
     Dosage: UNK UNK, DAILY [ONE DAILY BREAKFAST]
  16. VITAMIN D 2000 [Concomitant]
     Active Substance: VITAMIN D NOS
     Dosage: 2000 MG, 1X/DAY (DAILY LUNCH)
  17. PUMPKIN SEED OIL [Concomitant]
     Dosage: 3000 MG, DAILY
  18. MELATONIN [Concomitant]
     Active Substance: MELATONIN
     Dosage: 6 MG, 1X/DAY (NIGHTLY)

REACTIONS (5)
  - Fatigue [Not Recovered/Not Resolved]
  - Dyslexia [Unknown]
  - Somnolence [Unknown]
  - Spinal stenosis [Unknown]
  - Intentional product use issue [Unknown]

NARRATIVE: CASE EVENT DATE: 2017
